FAERS Safety Report 16327401 (Version 1)
Quarter: 2019Q2

REPORT INFORMATION
  Report Type: Spontaneous
  Country: FR (occurrence: FR)
  Receive Date: 20190517
  Receipt Date: 20190517
  Transmission Date: 20190711
  Serious: Yes (Other)
  Sender: FDA-Public Use
  Company Number: FR-PURDUE PHARMA-GBR-2019-0066505

PATIENT
  Age: 36 Year
  Sex: Male

DRUGS (1)
  1. NON-PMN BUPRENORPHINE [Suspect]
     Active Substance: BUPRENORPHINE
     Indication: PRODUCT USED FOR UNKNOWN INDICATION
     Dosage: UNK
     Route: 065

REACTIONS (6)
  - Confusional state [Recovering/Resolving]
  - Hypertonia [Recovering/Resolving]
  - Salivary hypersecretion [Recovering/Resolving]
  - Logorrhoea [Recovering/Resolving]
  - Aggression [Recovering/Resolving]
  - Miosis [Recovering/Resolving]
